FAERS Safety Report 8884248 (Version 1)
Quarter: 2012Q4

REPORT INFORMATION
  Report Type: 
  Country: US (occurrence: US)
  Receive Date: 20121102
  Receipt Date: 20121102
  Transmission Date: 20130627
  Serious: No
  Sender: FDA-Public Use
  Company Number: US-ASTRAZENECA-2011SE19361

PATIENT
  Age: 84 Year
  Sex: Female

DRUGS (2)
  1. NEXIUM [Suspect]
     Route: 048
  2. PRILOSEC [Suspect]
     Indication: PEPTIC ULCER
     Route: 048

REACTIONS (6)
  - Laryngitis [Unknown]
  - Ear infection [Unknown]
  - Hypoacusis [Unknown]
  - Gastric ulcer [Unknown]
  - Drug ineffective [Unknown]
  - Intentional drug misuse [Unknown]
